FAERS Safety Report 8560863 (Version 2)
Quarter: 2012Q4

REPORT INFORMATION
  Report Type: 
  Country: FR (occurrence: FR)
  Receive Date: 20120514
  Receipt Date: 20121221
  Transmission Date: 20130627
  Serious: Yes (Other)
  Sender: FDA-Public Use
  Company Number: FR-JNJFOC-20120506451

PATIENT
  Age: 42 Year
  Sex: Female
  Weight: 54 kg

DRUGS (6)
  1. REMICADE [Suspect]
     Indication: COLITIS ULCERATIVE
     Dosage: 14th infusion
     Route: 042
  2. REMICADE [Suspect]
     Indication: COLITIS ULCERATIVE
     Dosage: start date: 2009 or 2010
     Route: 042
  3. REMICADE [Suspect]
     Indication: COLITIS ULCERATIVE
     Dosage: 17th infusion
     Route: 042
     Dates: start: 20120406, end: 20120406
  4. REMICADE [Suspect]
     Indication: COLITIS ULCERATIVE
     Dosage: 13th infusion
     Route: 042
     Dates: start: 201204
  5. PENTASA [Concomitant]
     Route: 065
  6. DEROXAT [Concomitant]
     Route: 065

REACTIONS (1)
  - Infusion related reaction [Unknown]
